FAERS Safety Report 20636720 (Version 1)
Quarter: 2022Q1

REPORT INFORMATION
  Report Type: Report from Study
  Country: HU (occurrence: HU)
  Receive Date: 20220325
  Receipt Date: 20220325
  Transmission Date: 20220423
  Serious: Yes (Hospitalization, Other)
  Sender: FDA-Public Use
  Company Number: HU-002147023-NVSC2022HU010714

PATIENT
  Age: 36 Year
  Sex: Male
  Weight: 49 kg

DRUGS (5)
  1. AMLODIPINE [Suspect]
     Active Substance: AMLODIPINE BESYLATE
     Indication: Hypertension
     Dosage: 2.5 MG, BID
     Route: 048
     Dates: start: 2019
  2. NEBIVOLOL [Suspect]
     Active Substance: NEBIVOLOL
     Indication: Hypertension
     Dosage: 5 MG, BID
     Route: 048
     Dates: start: 2019
  3. MYFORTIC [Suspect]
     Active Substance: MYCOPHENOLATE SODIUM
     Indication: Renal transplant
     Dosage: 360 MG, BID
     Route: 048
     Dates: start: 20210703, end: 20211228
  4. PREDNISOLONE [Concomitant]
     Active Substance: PREDNISOLONE
     Indication: Renal transplant
     Dosage: 10 MG, QD
     Route: 048
     Dates: start: 20210703
  5. ENVARSUS XR [Concomitant]
     Active Substance: TACROLIMUS
     Indication: Renal transplant
     Dosage: 6 MG, QD
     Route: 048
     Dates: start: 20210703

REACTIONS (9)
  - Cytomegalovirus infection [Recovered/Resolved]
  - Leukopenia [Recovered/Resolved]
  - Pyrexia [Unknown]
  - Congestive cardiomyopathy [Unknown]
  - Inflammatory bowel disease [Unknown]
  - Cholangitis sclerosing [Unknown]
  - Glomerulonephritis [Unknown]
  - Gastrointestinal disorder [Recovered/Resolved]
  - Liver disorder [Recovered/Resolved]

NARRATIVE: CASE EVENT DATE: 20210101
